FAERS Safety Report 23333451 (Version 3)
Quarter: 2024Q3

REPORT INFORMATION
  Report Type: Spontaneous
  Country: CA (occurrence: CA)
  Receive Date: 20231222
  Receipt Date: 20240927
  Transmission Date: 20241017
  Serious: Yes (Congenital Anomaly)
  Sender: CIPHER
  Company Number: CA-CIPHER-2023-CA-000733

PATIENT

DRUGS (45)
  1. TRAMADOL HYDROCHLORIDE [Suspect]
     Active Substance: TRAMADOL HYDROCHLORIDE
     Indication: Exposure during pregnancy
     Route: 064
  2. FOLIC ACID [Suspect]
     Active Substance: FOLIC ACID
     Indication: Exposure during pregnancy
     Route: 064
  3. FOSAMAX [Suspect]
     Active Substance: ALENDRONATE SODIUM
     Indication: Exposure during pregnancy
     Route: 064
  4. GOLD [Suspect]
     Active Substance: GOLD
     Indication: Exposure during pregnancy
     Route: 064
  5. HUMIRA [Suspect]
     Active Substance: ADALIMUMAB
     Indication: Exposure during pregnancy
     Route: 064
  6. HYDROXYCHLOROQUINE [Suspect]
     Active Substance: HYDROXYCHLOROQUINE
     Indication: Exposure during pregnancy
     Route: 064
  7. HYDROXYCHLOROQUINE SULFATE [Suspect]
     Active Substance: HYDROXYCHLOROQUINE SULFATE
     Indication: Exposure during pregnancy
     Route: 064
  8. HYDROCORTISONE [Suspect]
     Active Substance: HYDROCORTISONE\HYDROCORTISONE ACETATE
     Indication: Exposure during pregnancy
     Route: 064
  9. KEVZARA [Suspect]
     Active Substance: SARILUMAB
     Indication: Exposure during pregnancy
     Route: 064
  10. LEFLUNOMIDE [Suspect]
     Active Substance: LEFLUNOMIDE
     Indication: Exposure during pregnancy
     Route: 064
  11. METHOTREXATE [Suspect]
     Active Substance: METHOTREXATE
     Indication: Exposure during pregnancy
     Route: 064
  12. ACETAMINOPHEN [Suspect]
     Active Substance: ACETAMINOPHEN
     Indication: Exposure during pregnancy
     Route: 064
  13. METHYLPREDNISOLONE [Suspect]
     Active Substance: METHYLPREDNISOLONE
     Indication: Exposure during pregnancy
     Route: 064
  14. MINOCYCLINE [Suspect]
     Active Substance: MINOCYCLINE HYDROCHLORIDE
     Indication: Exposure during pregnancy
     Route: 064
  15. MYOCHRYSINE [Suspect]
     Active Substance: GOLD SODIUM THIOMALATE
     Indication: Exposure during pregnancy
     Route: 064
  16. NAPROXEN [Concomitant]
     Active Substance: NAPROXEN
     Indication: Exposure during pregnancy
     Route: 064
  17. ORENCIA [Suspect]
     Active Substance: ABATACEPT
     Indication: Exposure during pregnancy
     Route: 064
  18. OTEZLA [Suspect]
     Active Substance: APREMILAST
     Indication: Exposure during pregnancy
     Route: 064
  19. PERIOGARD [Suspect]
     Active Substance: CHLORHEXIDINE GLUCONATE
     Indication: Exposure during pregnancy
     Route: 064
  20. PHTHALYLSULFATHIAZOLE [Suspect]
     Active Substance: PHTHALYLSULFATHIAZOLE
     Indication: Exposure during pregnancy
     Route: 064
  21. PSEUDOEPHEDRINE [Suspect]
     Active Substance: PSEUDOEPHEDRINE
     Indication: Exposure during pregnancy
     Route: 064
  22. REMICADE [Suspect]
     Active Substance: INFLIXIMAB
     Indication: Exposure during pregnancy
     Route: 064
  23. ACTEMRA [Suspect]
     Active Substance: TOCILIZUMAB
     Indication: Exposure during pregnancy
     Route: 064
  24. RITUXIMAB [Suspect]
     Active Substance: RITUXIMAB
     Indication: Exposure during pregnancy
     Route: 064
  25. SULFASALAZINE [Suspect]
     Active Substance: SULFASALAZINE
     Indication: Exposure during pregnancy
     Route: 064
  26. SIMPONI [Suspect]
     Active Substance: GOLIMUMAB
     Indication: Exposure during pregnancy
     Route: 064
  27. SIRUKUMAB [Suspect]
     Active Substance: SIRUKUMAB
     Indication: Exposure during pregnancy
     Route: 064
  28. GOLD SODIUM THIOMALATE [Suspect]
     Active Substance: GOLD SODIUM THIOMALATE
     Indication: Exposure during pregnancy
     Route: 064
  29. STELARA [Suspect]
     Active Substance: USTEKINUMAB
     Indication: Exposure during pregnancy
     Route: 064
  30. SULFAMETHOXAZOLE\TRIMETHOPRIM [Suspect]
     Active Substance: SULFAMETHOXAZOLE\TRIMETHOPRIM
     Indication: Exposure during pregnancy
     Route: 064
  31. SULFASALAZINE [Suspect]
     Active Substance: SULFASALAZINE
     Indication: Exposure during pregnancy
     Route: 064
  32. XELJANZ [Suspect]
     Active Substance: TOFACITINIB CITRATE
     Indication: Exposure during pregnancy
     Route: 064
  33. PREDNISONE [Suspect]
     Active Substance: PREDNISONE
     Indication: Exposure during pregnancy
     Route: 064
  34. ARAVA [Suspect]
     Active Substance: LEFLUNOMIDE
     Indication: Exposure during pregnancy
     Route: 064
  35. AZATHIOPRINE [Suspect]
     Active Substance: AZATHIOPRINE
     Indication: Exposure during pregnancy
     Route: 064
  36. CETIRIZINE HYDROCHLORIDE [Suspect]
     Active Substance: CETIRIZINE HYDROCHLORIDE
     Indication: Exposure during pregnancy
     Route: 064
  37. CIMZIA [Suspect]
     Active Substance: CERTOLIZUMAB PEGOL
     Indication: Rheumatoid arthritis
     Route: 064
  38. CORTISONE ACETATE [Suspect]
     Active Substance: CORTISONE ACETATE
     Indication: Product used for unknown indication
     Route: 064
  39. COSENTYX [Suspect]
     Active Substance: SECUKINUMAB
     Indication: Exposure during pregnancy
     Route: 064
  40. DESOGESTREL;ETHINYLE [Concomitant]
     Indication: Exposure during pregnancy
     Route: 064
  41. DESOXIMETASONE [Suspect]
     Active Substance: DESOXIMETASONE
     Indication: Exposure during pregnancy
     Route: 064
  42. DICLOFENAC SODIUM [Suspect]
     Active Substance: DICLOFENAC\DICLOFENAC SODIUM
     Indication: Exposure during pregnancy
     Route: 064
  43. ENBREL [Suspect]
     Active Substance: ETANERCEPT
     Indication: Exposure during pregnancy
     Route: 064
  44. ERELZI [Suspect]
     Active Substance: ETANERCEPT-SZZS
     Indication: Exposure during pregnancy
     Route: 064
  45. FLUMETHASONE PIVALATE [Suspect]
     Active Substance: FLUMETHASONE PIVALATE
     Indication: Exposure during pregnancy
     Route: 064

REACTIONS (3)
  - Congenital anomaly [Not Recovered/Not Resolved]
  - Maternal exposure during pregnancy [Not Recovered/Not Resolved]
  - Off label use [Not Recovered/Not Resolved]
